FAERS Safety Report 18766108 (Version 1)
Quarter: 2021Q1

REPORT INFORMATION
  Report Type: Spontaneous
  Country: US (occurrence: US)
  Receive Date: 20210121
  Receipt Date: 20210121
  Transmission Date: 20210419
  Serious: Yes (Other)
  Sender: FDA-Public Use
  Company Number: US-CADILA HEALTHCARE LIMITED-US-ZYDUS-061101

PATIENT

DRUGS (1)
  1. AMANTADINE. [Suspect]
     Active Substance: AMANTADINE HYDROCHLORIDE
     Indication: END STAGE RENAL DISEASE
     Dosage: 100 MILLIGRAM, BID
     Route: 048

REACTIONS (4)
  - Medication error [Unknown]
  - Toxicity to various agents [Unknown]
  - Overdose [Unknown]
  - Metabolic acidosis [Recovered/Resolved]
